FAERS Safety Report 18550119 (Version 6)
Quarter: 2022Q4

REPORT INFORMATION
  Report Type: Report from Study
  Country: IL (occurrence: IL)
  Receive Date: 20201126
  Receipt Date: 20221221
  Transmission Date: 20230113
  Serious: Yes (Death, Life-Threatening, Hospitalization)
  Sender: FDA-Public Use
  Company Number: IL-ABBVIE-20K-082-3665697-00

PATIENT
  Age: 73 Year
  Sex: Male

DRUGS (11)
  1. VENCLEXTA [Suspect]
     Active Substance: VENETOCLAX
     Indication: Acute myeloid leukaemia
     Route: 048
     Dates: start: 20200929, end: 20200929
  2. VENCLEXTA [Suspect]
     Active Substance: VENETOCLAX
     Indication: Acute myeloid leukaemia
     Route: 048
     Dates: start: 20200930, end: 20200930
  3. VENCLEXTA [Suspect]
     Active Substance: VENETOCLAX
     Indication: Acute myeloid leukaemia
     Route: 048
     Dates: start: 20201001, end: 20201012
  4. AZACITIDINE [Suspect]
     Active Substance: AZACITIDINE
     Indication: Acute myeloid leukaemia
     Dosage: DURATION TEXT ONE CYCLE
     Route: 058
     Dates: start: 20200929, end: 20201007
  5. METFORMIN HYDROCHLORIDE\SITAGLIPTIN PHOSPHATE [Concomitant]
     Active Substance: METFORMIN HYDROCHLORIDE\SITAGLIPTIN PHOSPHATE
     Indication: Diabetes mellitus
     Dates: start: 2007, end: 20201013
  6. JARDIANCE [Concomitant]
     Active Substance: EMPAGLIFLOZIN
     Indication: Diabetes mellitus
     Dosage: JARDIANCE 5/850 FOR DAY
     Dates: start: 2007, end: 20201013
  7. Cartia [Concomitant]
     Indication: Myocardial ischaemia
     Dates: start: 2001, end: 20201013
  8. PLAVIX [Concomitant]
     Active Substance: CLOPIDOGREL BISULFATE
     Indication: Myocardial ischaemia
     Dates: start: 2001, end: 20201013
  9. HYDROCHLOROTHIAZIDE\RAMIPRIL [Concomitant]
     Active Substance: HYDROCHLOROTHIAZIDE\RAMIPRIL
     Indication: Myocardial ischaemia
     Dosage: FOR A DAY
     Dates: start: 2001, end: 20201110
  10. BISOPROLOL FUMARATE [Concomitant]
     Active Substance: BISOPROLOL FUMARATE
     Indication: Myocardial ischaemia
     Dates: start: 2001, end: 20201110
  11. ALLOPURINOL [Concomitant]
     Active Substance: ALLOPURINOL
     Indication: Prophylaxis
     Dates: end: 20201012

REACTIONS (3)
  - Sepsis [Fatal]
  - Neutropenia [Fatal]
  - Anal abscess [Recovered/Resolved]

NARRATIVE: CASE EVENT DATE: 20201012
